FAERS Safety Report 7479538-9 (Version None)
Quarter: 2011Q2

REPORT INFORMATION
  Report Type: 
  Country: None (occurrence: None)
  Receive Date: 20110513
  Receipt Date: 20110504
  Transmission Date: 20111010
  Serious: Yes (Other)
  Sender: FDA-Public Use
  Company Number: US-ASTRAZENECA-2011SE27173

PATIENT
  Sex: Female

DRUGS (1)
  1. NEXIUM [Suspect]
     Route: 048

REACTIONS (10)
  - BLOOD PRESSURE DIASTOLIC DECREASED [None]
  - LOSS OF CONSCIOUSNESS [None]
  - DRUG DOSE OMISSION [None]
  - APHAGIA [None]
  - WEIGHT DECREASED [None]
  - HEART RATE ABNORMAL [None]
  - INSOMNIA [None]
  - DYSPEPSIA [None]
  - DIARRHOEA [None]
  - HAEMATEMESIS [None]
